FAERS Safety Report 5626815-X (Version None)
Quarter: 2008Q1

REPORT INFORMATION
  Report Type: 
  Country: None (occurrence: None)
  Receive Date: 20080214
  Receipt Date: 20080207
  Transmission Date: 20080703
  Serious: Yes (Hospitalization, Disabling, Other)
  Sender: FDA-Public Use
  Company Number: DE-GENENTECH-252301

PATIENT
  Age: 86 Year
  Sex: Female

DRUGS (2)
  1. LUCENTIS [Suspect]
     Indication: MACULAR DEGENERATION
     Dosage: UNK, UNK
     Route: 031
     Dates: start: 20060901
  2. ANTICOAGULANTS [Concomitant]
     Indication: DRUG USE FOR UNKNOWN INDICATION

REACTIONS (3)
  - EYE HAEMORRHAGE [None]
  - EYE INFLAMMATION [None]
  - GLAUCOMA [None]
